FAERS Safety Report 17846292 (Version 2)
Quarter: 2020Q2

REPORT INFORMATION
  Report Type: Spontaneous
  Country: JP (occurrence: JP)
  Receive Date: 20200601
  Receipt Date: 20200611
  Transmission Date: 20200714
  Serious: Yes (Other)
  Sender: FDA-Public Use
  Company Number: JP-PFIZER INC-2020213709

PATIENT
  Age: 6 Decade
  Sex: Male

DRUGS (1)
  1. XELJANZ [Suspect]
     Active Substance: TOFACITINIB CITRATE
     Indication: COLITIS ULCERATIVE
     Dosage: 10 MG, 2X/DAY
     Route: 048
     Dates: start: 20200323

REACTIONS (2)
  - Herpes zoster [Recovered/Resolved]
  - Cytomegalovirus enterocolitis [Recovered/Resolved]

NARRATIVE: CASE EVENT DATE: 20200417
